FAERS Safety Report 10560577 (Version 2)
Quarter: 2015Q4

REPORT INFORMATION
  Report Type: Spontaneous
  Country: US (occurrence: US)
  Receive Date: 20141103
  Receipt Date: 20151015
  Transmission Date: 20160304
  Serious: No
  Sender: FDA-Public Use
  Company Number: US-SA-2014SA126941

PATIENT
  Age: 10 Year
  Sex: Female

DRUGS (7)
  1. LUMIZYME [Suspect]
     Active Substance: ALGLUCOSIDASE ALFA
     Indication: GLYCOGEN STORAGE DISEASE TYPE II
     Route: 041
  2. BENADRYL [Concomitant]
     Active Substance: DIPHENHYDRAMINE HYDROCHLORIDE
     Indication: PREMEDICATION
     Route: 048
  3. LUMIZYME [Suspect]
     Active Substance: ALGLUCOSIDASE ALFA
     Indication: GLYCOGEN STORAGE DISEASE TYPE II
     Route: 041
  4. LUMIZYME [Suspect]
     Active Substance: ALGLUCOSIDASE ALFA
     Indication: GLYCOGEN STORAGE DISEASE TYPE II
     Route: 041
  5. LUMIZYME [Suspect]
     Active Substance: ALGLUCOSIDASE ALFA
     Indication: GLYCOGEN STORAGE DISEASE TYPE II
     Route: 041
  6. ACETAMINOPHEN. [Concomitant]
     Active Substance: ACETAMINOPHEN
     Indication: PREMEDICATION
     Route: 048
  7. TYLENOL [Concomitant]
     Active Substance: ACETAMINOPHEN
     Indication: PREMEDICATION
     Route: 048
     Dates: start: 20140911

REACTIONS (4)
  - Headache [Recovered/Resolved]
  - Musculoskeletal stiffness [Unknown]
  - Muscle spasms [Recovered/Resolved]
  - Infusion related reaction [Unknown]

NARRATIVE: CASE EVENT DATE: 20140911
